FAERS Safety Report 4665005-4 (Version None)
Quarter: 2005Q2

REPORT INFORMATION
  Report Type: 
  Country: None (occurrence: None)
  Receive Date: 20050518
  Receipt Date: 20050518
  Transmission Date: 20051028
  Serious: Yes (Other)
  Sender: FDA-Public Use
  Company Number: None

PATIENT
  Age: 30 Year
  Sex: Male
  Weight: 82.1011 kg

DRUGS (1)
  1. GABAPENTIN [Suspect]
     Indication: GRAND MAL CONVULSION
     Dosage: PO 2 TID
     Route: 048
     Dates: start: 20050214, end: 20050408

REACTIONS (3)
  - AGGRESSION [None]
  - PHARMACEUTICAL PRODUCT COMPLAINT [None]
  - THERAPEUTIC RESPONSE UNEXPECTED WITH DRUG SUBSTITUTION [None]
